FAERS Safety Report 8016876-5 (Version None)
Quarter: 2012Q1

REPORT INFORMATION
  Report Type: 
  Country: None (occurrence: None)
  Receive Date: 20120102
  Receipt Date: 20111219
  Transmission Date: 20120608
  Serious: Yes (Hospitalization, Other)
  Sender: FDA-Public Use
  Company Number: PHHY2011FI110160

PATIENT
  Age: 82 Year
  Sex: Female

DRUGS (3)
  1. ESCITALOPRAM [Concomitant]
     Dates: start: 20111202
  2. EXELON [Suspect]
     Indication: DEMENTIA
     Dosage: 4.6 MG/ 24 HOURS (1 PATCH PER DAY)
     Route: 062
     Dates: start: 20111208, end: 20111214
  3. WARFARIN SODIUM [Concomitant]

REACTIONS (6)
  - BLOOD PRESSURE SYSTOLIC INCREASED [None]
  - DIZZINESS [None]
  - MALAISE [None]
  - BLOOD PRESSURE DIASTOLIC DECREASED [None]
  - HEADACHE [None]
  - POOR QUALITY SLEEP [None]
